FAERS Safety Report 16114687 (Version 1)
Quarter: 2019Q1

REPORT INFORMATION
  Report Type: Spontaneous
  Country: NO (occurrence: NO)
  Receive Date: 20190325
  Receipt Date: 20190325
  Transmission Date: 20190418
  Serious: Yes (Hospitalization, Disabling)
  Sender: FDA-Public Use
  Company Number: NO-TEVA-2019-NO-1028101

PATIENT
  Age: 47 Year
  Sex: Female
  Weight: 96 kg

DRUGS (1)
  1. PREDNISOLONE. [Suspect]
     Active Substance: PREDNISOLONE
     Indication: AUTOIMMUNE HEPATITIS
     Route: 048
     Dates: start: 2018

REACTIONS (1)
  - Steroid diabetes [Recovering/Resolving]
